FAERS Safety Report 11646059 (Version 2)
Quarter: 2016Q2

REPORT INFORMATION
  Report Type: Spontaneous
  Country: US (occurrence: US)
  Receive Date: 20151020
  Receipt Date: 20160429
  Transmission Date: 20160815
  Serious: No
  Sender: FDA-Public Use
  Company Number: US-ROCHE-1614107

PATIENT
  Sex: Female
  Weight: 74 kg

DRUGS (1)
  1. ESBRIET [Suspect]
     Active Substance: PIRFENIDONE
     Indication: IDIOPATHIC PULMONARY FIBROSIS
     Dosage: 267 MG THRICE A DAY DAILY DOSE OF 2403 MG
     Route: 048
     Dates: start: 20150316

REACTIONS (7)
  - Headache [Unknown]
  - Asthenia [Unknown]
  - Nausea [Unknown]
  - Weight decreased [Unknown]
  - Hyperchlorhydria [Unknown]
  - Malaise [Unknown]
  - Tooth loss [Unknown]
